FAERS Safety Report 4294368-7 (Version None)
Quarter: 2004Q1

REPORT INFORMATION
  Report Type: 
  Country: None (occurrence: None)
  Receive Date: 20040211
  Receipt Date: 20030428
  Transmission Date: 20041129
  Serious: Yes (Hospitalization)
  Sender: FDA-Public Use
  Company Number: A0407354A

PATIENT
  Age: 69 Year
  Sex: Female

DRUGS (1)
  1. MELPHALAN INJECTION (MELPHALAN) [Suspect]
     Indication: MULTIPLE MYELOMA
     Dosage: 340 MG/ INTRAVENOUS
     Route: 042
     Dates: start: 20030324

REACTIONS (10)
  - ERYTHEMA [None]
  - INFECTION [None]
  - JAW DISORDER [None]
  - NAUSEA [None]
  - NEUTROPENIA [None]
  - PRODUCTIVE COUGH [None]
  - PYREXIA [None]
  - SWELLING [None]
  - TENDERNESS [None]
  - VOMITING [None]
